FAERS Safety Report 16884353 (Version 1)
Quarter: 2019Q4

REPORT INFORMATION
  Report Type: Spontaneous
  Country: US (occurrence: US)
  Receive Date: 20191004
  Receipt Date: 20191004
  Transmission Date: 20200122
  Serious: Yes (Hospitalization)
  Sender: FDA-Public Use
  Company Number: US-TARO PHARMACEUTICALS USA.,INC-2019SUN00500

PATIENT
  Age: 37 Year
  Sex: Female

DRUGS (5)
  1. IBUPROFEN. [Suspect]
     Active Substance: IBUPROFEN
     Indication: PELVIC CONGESTION
     Dosage: 600 MG, 1DOSE/6HOUR (AS NEEDED)
     Route: 065
  2. IBUPROFEN. [Suspect]
     Active Substance: IBUPROFEN
     Dosage: 600 MG, TID
     Route: 065
  3. IBUPROFEN. [Suspect]
     Active Substance: IBUPROFEN
     Dosage: 600 MG, BID
     Route: 065
  4. KETOROLAC TROMETHAMINE. [Suspect]
     Active Substance: KETOROLAC TROMETHAMINE
     Indication: PELVIC CONGESTION
     Dosage: 60 MG, UNK
     Route: 042
  5. ACETAMINOPHEN. [Suspect]
     Active Substance: ACETAMINOPHEN
     Indication: PELVIC CONGESTION
     Dosage: UNK
     Route: 065

REACTIONS (2)
  - Renal infarct [Recovering/Resolving]
  - Acute kidney injury [Recovered/Resolved]
